FAERS Safety Report 5130503-6 (Version None)
Quarter: 2006Q4

REPORT INFORMATION
  Report Type: 
  Country: None (occurrence: None)
  Receive Date: 20061019
  Receipt Date: 20061005
  Transmission Date: 20070319
  Serious: Yes (Hospitalization)
  Sender: FDA-Public Use
  Company Number: JP-JPN-A200604066

PATIENT
  Age: 35 Year
  Sex: Female
  Weight: 46 kg

DRUGS (14)
  1. PAXIL [Suspect]
     Indication: DEPRESSION
     Dosage: 20MG PER DAY
     Route: 048
     Dates: end: 20061002
  2. MINOCYCLINE HCL [Suspect]
     Dosage: 100MG TWICE PER DAY
     Route: 042
     Dates: start: 20060831, end: 20060913
  3. FIRSTCIN [Suspect]
     Dosage: 1G TWICE PER DAY
     Route: 042
     Dates: start: 20060831, end: 20060913
  4. DALACIN [Suspect]
     Dosage: .6G TWICE PER DAY
     Route: 042
  5. CALONAL [Suspect]
     Route: 048
     Dates: start: 20060831, end: 20060919
  6. BENZALIN [Suspect]
     Indication: DEPRESSION
     Dosage: 5MG PER DAY
     Route: 048
     Dates: end: 20061002
  7. HIRNAMIN [Suspect]
     Indication: SCHIZOPHRENIA
     Dosage: 25MG PER DAY
     Route: 048
     Dates: end: 20061002
  8. CONSTAN [Concomitant]
     Indication: SCHIZOPHRENIA
     Dosage: .8MG PER DAY
     Route: 048
     Dates: end: 20061002
  9. HALOPERIDOL [Concomitant]
     Route: 065
  10. DORAL [Concomitant]
     Route: 065
  11. TOFRANIL [Concomitant]
     Indication: DEPRESSION
     Dosage: 50MG PER DAY
     Dates: end: 20061002
  12. ARTANE [Concomitant]
     Indication: DEPRESSION
     Dosage: 2MG PER DAY
     Route: 048
     Dates: end: 20061002
  13. ACETAMINOPHEN [Concomitant]
  14. CLINDAMYCIN PHOSPHATE [Concomitant]

REACTIONS (3)
  - DRUG HYPERSENSITIVITY [None]
  - PYREXIA [None]
  - RASH [None]
